FAERS Safety Report 18719470 (Version 1)
Quarter: 2021Q1

REPORT INFORMATION
  Report Type: Spontaneous
  Country: RU (occurrence: RU)
  Receive Date: 20210108
  Receipt Date: 20210108
  Transmission Date: 20210419
  Serious: Yes (Other)
  Sender: FDA-Public Use
  Company Number: RU-BAUSCH-BL-2020-039759

PATIENT
  Age: 51 Year
  Sex: Male

DRUGS (1)
  1. FLUCINAR [Suspect]
     Active Substance: FLUOCINOLONE ACETONIDE
     Indication: HAND DERMATITIS
     Route: 065

REACTIONS (1)
  - Dermatitis [Recovered/Resolved]
